FAERS Safety Report 13232180 (Version 6)
Quarter: 2017Q2

REPORT INFORMATION
  Report Type: Spontaneous
  Country: US (occurrence: US)
  Receive Date: 20170214
  Receipt Date: 20170622
  Transmission Date: 20170830
  Serious: No
  Sender: FDA-Public Use
  Company Number: PHEH2017US004661

PATIENT
  Sex: Female
  Weight: 72.56 kg

DRUGS (2)
  1. ZOFRAN [Suspect]
     Active Substance: ONDANSETRON HYDROCHLORIDE
     Indication: PRODUCT USED FOR UNKNOWN INDICATION
     Dosage: 4 MG, UNK
     Route: 048
     Dates: start: 20150109, end: 201503
  2. ZOFRAN ODT [Suspect]
     Active Substance: ONDANSETRON HYDROCHLORIDE
     Indication: VOMITING IN PREGNANCY
     Dosage: 1 DF, Q8H
     Route: 048
     Dates: start: 20150213

REACTIONS (16)
  - Oedema [Unknown]
  - Vulva cyst [Unknown]
  - Upper respiratory tract infection [Unknown]
  - Palpitations [Unknown]
  - Generalised anxiety disorder [Unknown]
  - Gastrooesophageal reflux disease [Unknown]
  - Vaginal infection [Unknown]
  - Injury [Unknown]
  - Vaginal discharge [Unknown]
  - Emotional distress [Unknown]
  - Abnormal weight gain [Unknown]
  - Product use issue [Unknown]
  - Dehydration [Unknown]
  - Dermatitis [Unknown]
  - Dizziness [Unknown]
  - Maternal exposure during pregnancy [Unknown]
